FAERS Safety Report 15589110 (Version 9)
Quarter: 2020Q4

REPORT INFORMATION
  Report Type: Report from Study
  Country: CA (occurrence: CA)
  Receive Date: 20181106
  Receipt Date: 20201228
  Transmission Date: 20210113
  Serious: Yes (Other)
  Sender: FDA-Public Use
  Company Number: CA-ORION CORPORATION ORION PHARMA-TREX2018-3177

PATIENT
  Age: 6 Year
  Sex: Female
  Weight: 28 kg

DRUGS (33)
  1. METHOTREXATE (TRADE NAME UNKNOWN) [Suspect]
     Active Substance: METHOTREXATE
     Indication: IMMUNOSUPPRESSANT DRUG THERAPY
     Route: 065
  2. ENBREL [Suspect]
     Active Substance: ETANERCEPT
     Indication: JUVENILE IDIOPATHIC ARTHRITIS
     Route: 065
  3. ACTEMRA [Suspect]
     Active Substance: TOCILIZUMAB
     Indication: IMMUNOSUPPRESSANT DRUG THERAPY
     Route: 065
  4. ANAKINRA [Suspect]
     Active Substance: ANAKINRA
     Route: 058
  5. GAMMAGARD [Suspect]
     Active Substance: HUMAN IMMUNOGLOBULIN G
     Indication: JUVENILE IDIOPATHIC ARTHRITIS
     Dosage: 20 UNK
     Route: 065
  6. ACETYLSALICYLIC ACID [Suspect]
     Active Substance: ASPIRIN
     Dosage: CYCLIC
     Route: 065
  7. ACTEMRA [Suspect]
     Active Substance: TOCILIZUMAB
     Indication: JUVENILE IDIOPATHIC ARTHRITIS
     Route: 065
  8. ACTEMRA [Suspect]
     Active Substance: TOCILIZUMAB
     Route: 065
  9. KINERET [Suspect]
     Active Substance: ANAKINRA
     Route: 065
  10. TINZAPARIN [Suspect]
     Active Substance: TINZAPARIN
     Route: 065
  11. PLACEBO [Suspect]
     Active Substance: UNSPECIFIED INGREDIENT
     Indication: JUVENILE IDIOPATHIC ARTHRITIS
     Route: 065
  12. METHOTREXATE (TRADE NAME UNKNOWN) [Suspect]
     Active Substance: METHOTREXATE
     Route: 065
  13. CICLOSPORIN [Suspect]
     Active Substance: CYCLOSPORINE
     Indication: JUVENILE IDIOPATHIC ARTHRITIS
     Route: 065
  14. REMICADE [Suspect]
     Active Substance: INFLIXIMAB
     Route: 065
  15. HYDROCORTISONE. [Suspect]
     Active Substance: HYDROCORTISONE
     Route: 065
  16. ACETYLSALICYLIC ACID [Suspect]
     Active Substance: ASPIRIN
     Indication: JUVENILE IDIOPATHIC ARTHRITIS
     Route: 065
  17. REMICADE [Suspect]
     Active Substance: INFLIXIMAB
     Indication: JUVENILE IDIOPATHIC ARTHRITIS
     Route: 042
  18. PREDNISONE. [Suspect]
     Active Substance: PREDNISONE
     Indication: STILL^S DISEASE
     Route: 065
  19. ANAKINRA [Suspect]
     Active Substance: ANAKINRA
     Route: 058
  20. HYDROCORTISONE. [Suspect]
     Active Substance: HYDROCORTISONE
     Indication: PRODUCT USED FOR UNKNOWN INDICATION
     Route: 065
  21. ACTEMRA [Suspect]
     Active Substance: TOCILIZUMAB
     Route: 065
  22. IMMUNOGLOBULINS NOS [Suspect]
     Active Substance: IMMUNE GLOBULIN NOS
     Indication: JUVENILE IDIOPATHIC ARTHRITIS
     Route: 042
  23. INDOMETHACIN. [Suspect]
     Active Substance: INDOMETHACIN
     Indication: STILL^S DISEASE
     Route: 065
  24. METHOTREXATE (TRADE NAME UNKNOWN) [Suspect]
     Active Substance: METHOTREXATE
     Indication: JUVENILE IDIOPATHIC ARTHRITIS
     Route: 065
  25. CELECOXIB. [Suspect]
     Active Substance: CELECOXIB
     Indication: JUVENILE IDIOPATHIC ARTHRITIS
     Route: 065
  26. ENBREL [Suspect]
     Active Substance: ETANERCEPT
     Route: 065
  27. PREDNISONE. [Suspect]
     Active Substance: PREDNISONE
     Route: 065
  28. METHOTREXATE (TRADE NAME UNKNOWN) [Suspect]
     Active Substance: METHOTREXATE
     Route: 065
  29. KINERET [Suspect]
     Active Substance: ANAKINRA
     Route: 065
  30. ANAKINRA [Suspect]
     Active Substance: ANAKINRA
     Indication: JUVENILE IDIOPATHIC ARTHRITIS
     Route: 058
  31. KINERET [Suspect]
     Active Substance: ANAKINRA
     Indication: JUVENILE IDIOPATHIC ARTHRITIS
     Route: 065
  32. TINZAPARIN [Suspect]
     Active Substance: TINZAPARIN
     Indication: PRODUCT USED FOR UNKNOWN INDICATION
     Route: 065
  33. INFLIXIMAB [Suspect]
     Active Substance: INFLIXIMAB
     Indication: JUVENILE IDIOPATHIC ARTHRITIS
     Route: 065

REACTIONS (4)
  - Antinuclear antibody positive [Not Recovered/Not Resolved]
  - Product use issue [Unknown]
  - Adrenal suppression [Not Recovered/Not Resolved]
  - Psoriasis [Not Recovered/Not Resolved]
